FAERS Safety Report 8499187-3 (Version None)
Quarter: 2012Q2

REPORT INFORMATION
  Report Type: 
  Country: None (occurrence: None)
  Receive Date: 20120405
  Receipt Date: 20100621
  Transmission Date: 20120825
  Serious: Yes (Hospitalization)
  Sender: FDA-Public Use
  Company Number: PHHY2010US41377

PATIENT
  Age: 49 Year
  Sex: Female

DRUGS (16)
  1. KLONOPIN [Concomitant]
  2. NEXIUM [Concomitant]
  3. CINERGEN [Concomitant]
  4. XENICAL [Concomitant]
  5. TEREFIT [Concomitant]
  6. LORTAB [Concomitant]
  7. PREMARIN [Concomitant]
  8. TRAZODONE HCL [Concomitant]
  9. ENABLEX [Concomitant]
  10. CALCIUM CARBONATE [Concomitant]
  11. NEURONTIN [Concomitant]
  12. VYTORIN [Concomitant]
  13. RECLAST [Suspect]
     Dates: start: 20100614
  14. CYMBALTA [Concomitant]
  15. TOPAMAX [Concomitant]
  16. VITAMIN D [Concomitant]

REACTIONS (8)
  - VOMITING [None]
  - HYPOPHAGIA [None]
  - MALAISE [None]
  - CHEST PAIN [None]
  - DIARRHOEA [None]
  - ASTHENIA [None]
  - HEADACHE [None]
  - ABDOMINAL PAIN UPPER [None]
